FAERS Safety Report 10678167 (Version 1)
Quarter: 2014Q4

REPORT INFORMATION
  Report Type: Spontaneous
  Country: US (occurrence: None)
  Receive Date: 20141223
  Receipt Date: 20141223
  Transmission Date: 20150529
  Serious: Yes (Hospitalization)
  Sender: FDA-Public Use
  Company Number: AXC-2014-000774

PATIENT
  Age: 53 Year
  Sex: Male

DRUGS (11)
  1. URSODEOXYCHOLIC ACID [Suspect]
     Active Substance: URSODIOL
     Indication: PRODUCT USED FOR UNKNOWN INDICATION
     Route: 048
  2. MYCOPHENOLATE MOFETIL (MYCOPHENOLATE MOFETIL) [Concomitant]
     Active Substance: MYCOPHENOLATE MOFETIL
  3. PREDNISONE (PREDNISONE) [Concomitant]
     Active Substance: PREDNISONE
  4. FENOFIBRATE (FENOFIBRATE) [Concomitant]
  5. ACYCLOVIR (ACICLOVIR) [Concomitant]
  6. CALCIUM (CALCIUM)? [Concomitant]
  7. VITAMIN D (COLECALCIFEROL) [Concomitant]
  8. RITUXIMAB (RITUXIMAB) [Concomitant]
     Active Substance: RITUXIMAB
  9. TRIMETHOPRIM SULFAMETHOXAZOLE (SULFAMETHOXAZOLE, TRIMETHOPRIM) [Concomitant]
  10. INSULIN GLARGINE (INSULIN GLARGINE) [Concomitant]
     Active Substance: INSULIN GLARGINE
  11. GLIMEPIRIDE (GLIMEPIRIDE) [Concomitant]
     Active Substance: GLIMEPIRIDE

REACTIONS (1)
  - Babesiosis [None]
